FAERS Safety Report 16965975 (Version 1)
Quarter: 2019Q4

REPORT INFORMATION
  Report Type: Spontaneous
  Country: JP (occurrence: JP)
  Receive Date: 20191028
  Receipt Date: 20191028
  Transmission Date: 20200122
  Serious: Yes (Other)
  Sender: FDA-Public Use
  Company Number: JP-COVIS PHARMA B.V.-2019COV00264

PATIENT

DRUGS (1)
  1. RILUTEK [Suspect]
     Active Substance: RILUZOLE
     Route: 048

REACTIONS (1)
  - Gastric fistula [Unknown]

NARRATIVE: CASE EVENT DATE: 20191016
